FAERS Safety Report 10417914 (Version 2)
Quarter: 2014Q3

REPORT INFORMATION
  Report Type: Spontaneous
  Country: NL (occurrence: NL)
  Receive Date: 20140829
  Receipt Date: 20140909
  Transmission Date: 20150326
  Serious: Yes (Life-Threatening)
  Sender: FDA-Public Use
  Company Number: NL-TEVA-504043ISR

PATIENT
  Age: 75 Year
  Sex: Female
  Weight: 70 kg

DRUGS (2)
  1. CIPROFLOXACINE TABLET OMHULD 500MG [Interacting]
     Active Substance: CIPROFLOXACIN
     Indication: PYELONEPHRITIS
     Dosage: 500 MILLIGRAM DAILY;
     Route: 048
     Dates: start: 20131213, end: 20131220
  2. OFLOXACINE TABLET FO 200MG [Suspect]
     Active Substance: OFLOXACIN
     Indication: PYELONEPHRITIS
     Dosage: 200 MILLIGRAM DAILY;
     Route: 048
     Dates: start: 20131213, end: 20131220

REACTIONS (2)
  - Drug interaction [Recovering/Resolving]
  - Arthritis reactive [Recovering/Resolving]

NARRATIVE: CASE EVENT DATE: 20131220
